FAERS Safety Report 15173256 (Version 3)
Quarter: 2019Q1

REPORT INFORMATION
  Report Type: Report from Study
  Country: FR (occurrence: FR)
  Receive Date: 20180720
  Receipt Date: 20190215
  Transmission Date: 20190417
  Serious: Yes (Hospitalization)
  Sender: FDA-Public Use
  Company Number: FR-MYLANLABS-2018M1053357

PATIENT
  Age: 77 Year
  Sex: Female
  Weight: 79.4 kg

DRUGS (31)
  1. ASPIRINE PROTECT [Concomitant]
     Active Substance: ASPIRIN
     Indication: PRODUCT USED FOR UNKNOWN INDICATION
     Dosage: 100 MILLIGRAM
     Route: 065
     Dates: start: 20180124, end: 20180220
  2. DIAMICRON [Concomitant]
     Active Substance: GLICLAZIDE
     Indication: DIABETES MELLITUS
     Dosage: 60 MG, QD
     Route: 065
     Dates: start: 20180308, end: 20180312
  3. FUROSEMIDE. [Concomitant]
     Active Substance: FUROSEMIDE
     Dosage: 80 MILLIGRAM
     Route: 065
     Dates: start: 20180228, end: 20180228
  4. ALPRAZOLAM. [Concomitant]
     Active Substance: ALPRAZOLAM
     Indication: ANXIETY
     Dosage: .25 MILLIGRAM
     Route: 065
     Dates: start: 2016
  5. SALBUTAMOL [Concomitant]
     Active Substance: ALBUTEROL
     Indication: PLEURAL EFFUSION
     Dosage: 5 MG, QD
     Route: 065
     Dates: start: 20180228
  6. AMLODIPINE [Concomitant]
     Active Substance: AMLODIPINE BESYLATE
     Indication: HYPERTENSION
     Dosage: 10 MG, QD
     Route: 065
  7. TERBINAFINE. [Suspect]
     Active Substance: TERBINAFINE
     Indication: INGROWING NAIL
     Dosage: 250 MG, QD
     Route: 065
     Dates: start: 20180124, end: 20180220
  8. CEFAZOLINE                         /00288501/ [Concomitant]
     Active Substance: CEFAZOLIN
     Indication: STAPHYLOCOCCAL INFECTION
     Dosage: 2 GRAM
     Route: 065
     Dates: start: 20180301, end: 20180313
  9. METFORMINE                         /00082701/ [Concomitant]
     Active Substance: METFORMIN HYDROCHLORIDE
     Indication: DIABETES MELLITUS
     Dosage: 700 MILLIGRAM
     Route: 065
     Dates: start: 20180220, end: 20180220
  10. AERIUS                             /01009701/ [Concomitant]
     Active Substance: EBASTINE
     Indication: RHINITIS
     Dosage: 5 MILLIGRAM
     Route: 065
     Dates: start: 20180207, end: 20180220
  11. FUROSEMIDE. [Concomitant]
     Active Substance: FUROSEMIDE
     Indication: PLEURAL EFFUSION
     Dosage: 40 MILLIGRAM
     Route: 065
     Dates: start: 20180228
  12. REVLIMID [Suspect]
     Active Substance: LENALIDOMIDE
     Dosage: 210 MILLIGRAM, QD
     Route: 048
     Dates: start: 20180124, end: 20180219
  13. INSULINE ASPARTE [Concomitant]
     Indication: DIABETIC METABOLIC DECOMPENSATION
     Dosage: 300 MILLIGRAM
     Route: 065
     Dates: start: 20180221, end: 20180307
  14. RAMIPRIL. [Concomitant]
     Active Substance: RAMIPRIL
     Indication: HYPERTENSION
     Dosage: 10 MILLIGRAM
     Route: 065
  15. EPOETIN [Concomitant]
     Active Substance: ERYTHROPOIETIN
     Indication: MYELODYSPLASTIC SYNDROME
     Dosage: 42.8571 IU (INTERNATIONAL UNIT)
     Route: 058
     Dates: start: 20180301
  16. MYCOSTER                           /00619301/ [Concomitant]
     Active Substance: CICLOPIROX\CICLOPIROX OLAMINE
     Indication: INGROWING NAIL
     Dosage: 1 APPLICATION
     Route: 065
     Dates: start: 20180124, end: 20180220
  17. TARDYFERON [Concomitant]
     Active Substance: FERROUS SULFATE
     Indication: SERUM FERRITIN DECREASED
     Dosage: 80 MG, QD
     Route: 065
     Dates: start: 20170114, end: 20180220
  18. DIFFU K [Concomitant]
     Active Substance: POTASSIUM CHLORIDE
     Indication: PROPHYLAXIS
     Dosage: 600 MG, QD
     Route: 064
     Dates: start: 20180221
  19. CALCIPARINE [Concomitant]
     Active Substance: HEPARIN CALCIUM
     Indication: THROMBOSIS PROPHYLAXIS
     Dosage: 1500 IU, QD
     Route: 065
     Dates: start: 20180221, end: 20180321
  20. VILDAGLIPTINE [Concomitant]
     Active Substance: VILDAGLIPTIN
     Indication: DIABETES MELLITUS
     Dosage: 50 MG, QD
     Route: 065
     Dates: start: 20180226, end: 20180307
  21. EPOETIN [Concomitant]
     Active Substance: ERYTHROPOIETIN
     Dosage: 300 MICROGRAM, QW
     Route: 058
  22. INSULINE DETEMIR [Concomitant]
     Indication: DIABETIC METABOLIC DECOMPENSATION
     Dosage: 20 IU, QD
     Route: 065
     Dates: start: 20180226, end: 20180307
  23. PARACETAMOL [Concomitant]
     Active Substance: ACETAMINOPHEN
     Indication: STAPHYLOCOCCAL INFECTION
     Dosage: 4 G, QD
     Route: 065
     Dates: start: 20180221
  24. REVLIMID [Suspect]
     Active Substance: LENALIDOMIDE
     Indication: MYELODYSPLASTIC SYNDROME
     Dosage: 10 MG, UNK
     Route: 048
     Dates: start: 20180124, end: 20180219
  25. XELEVIA [Concomitant]
     Active Substance: SITAGLIPTIN PHOSPHATE
     Indication: DIABETES MELLITUS
     Dosage: 100 MG, QD
     Route: 065
     Dates: end: 20180220
  26. IPRATROPIUM [Concomitant]
     Active Substance: IPRATROPIUM
     Indication: PLEURAL EFFUSION
     Dosage: 5 MILLIGRAM
     Route: 065
     Dates: start: 20180228, end: 20180313
  27. MACROGOL [Concomitant]
     Active Substance: POLYETHYLENE GLYCOLS
     Indication: CONSTIPATION PROPHYLAXIS
     Dosage: UNK
     Route: 065
     Dates: start: 201709, end: 20180220
  28. INDAPAMID [Concomitant]
     Active Substance: INDAPAMIDE
     Indication: HYPERTENSION
     Dosage: 1.5 MG, QD
     Route: 065
  29. BROMAZEPAN [Concomitant]
     Active Substance: BROMAZEPAM
     Indication: ANXIETY
     Dosage: 6 MG, QD
     Route: 065
     Dates: start: 2016
  30. PHLOROGLUCINOL [Concomitant]
     Active Substance: PHLOROGLUCINOL
     Indication: DYSPEPSIA
     Dosage: 40 MG, QD
     Route: 065
     Dates: start: 20180221, end: 20180221
  31. DIOSMECTITA [Concomitant]
     Indication: DIARRHOEA
     Dosage: 3 GRAM, QD
     Route: 065
     Dates: start: 20180207, end: 20180220

REACTIONS (5)
  - Urticaria [Recovered/Resolved]
  - Pruritus [Recovered/Resolved]
  - Acute generalised exanthematous pustulosis [Recovered/Resolved]
  - Acute kidney injury [Recovered/Resolved with Sequelae]
  - Petechiae [Recovered/Resolved]

NARRATIVE: CASE EVENT DATE: 20180125
